FAERS Safety Report 6314355-4 (Version None)
Quarter: 2009Q3

REPORT INFORMATION
  Report Type: 
  Country: None (occurrence: None)
  Receive Date: 20090819
  Receipt Date: 20090810
  Transmission Date: 20100115
  Serious: Yes (Death, Hospitalization)
  Sender: FDA-Public Use
  Company Number: FR-JNJFOC-20090803257

PATIENT
  Age: 59 Year
  Sex: Male

DRUGS (11)
  1. REMICADE [Suspect]
     Indication: POLYCHONDRITIS
     Route: 042
  2. CORTANCYL [Suspect]
     Indication: POLYCHONDRITIS
     Route: 048
  3. PREVISCAN [Concomitant]
     Indication: THROMBOSIS PROPHYLAXIS
     Dosage: 10-15 MG QD
     Route: 048
  4. DOLIPRANE [Concomitant]
     Indication: PAIN
     Route: 048
  5. CONTRAMAL LP [Concomitant]
     Indication: PAIN
     Dosage: SLOW RELEASE
     Route: 048
  6. XATRAL LP [Concomitant]
     Indication: BENIGN PROSTATIC HYPERPLASIA
     Route: 048
  7. EXJADE [Concomitant]
     Indication: IRON OVERLOAD
     Route: 048
  8. ACTONEL [Concomitant]
     Indication: OSTEOPOROSIS
     Dosage: ENTERIC COATED TABLET
     Route: 048
  9. SEROPLEX [Concomitant]
     Indication: DEPRESSION
     Dosage: ENTERIC COATED
     Route: 048
  10. KALEORID LP [Concomitant]
     Indication: HYPOKALAEMIA
     Dosage: SLOW RELEASE TABLET
     Route: 048
  11. CACIT VITAMINE D3 [Concomitant]
     Indication: OSTEOPOROSIS
     Route: 048

REACTIONS (4)
  - DEATH [None]
  - DERMO-HYPODERMITIS [None]
  - MYCOBACTERIUM CHELONEI INFECTION [None]
  - SERRATIA INFECTION [None]
